FAERS Safety Report 17584355 (Version 5)
Quarter: 2020Q4

REPORT INFORMATION
  Report Type: Spontaneous
  Country: US (occurrence: US)
  Receive Date: 20200326
  Receipt Date: 20201229
  Transmission Date: 20210113
  Serious: No
  Sender: FDA-Public Use
  Company Number: NVSC2020US084365

PATIENT
  Sex: Female

DRUGS (6)
  1. TAFINLAR [Suspect]
     Active Substance: DABRAFENIB MESYLATE
     Indication: LUNG NEOPLASM MALIGNANT
     Dosage: 75 MG, QD
     Route: 048
     Dates: start: 20201030
  2. MEKINIST [Suspect]
     Active Substance: TRAMETINIB DIMETHYL SULFOXIDE
     Indication: LUNG NEOPLASM MALIGNANT
     Dosage: 1.5 MG, QD
     Route: 048
     Dates: start: 20201030
  3. MEKINIST [Suspect]
     Active Substance: TRAMETINIB DIMETHYL SULFOXIDE
     Indication: LUNG CARCINOMA CELL TYPE UNSPECIFIED STAGE 0
     Dosage: 2 MG, QD
     Route: 048
     Dates: start: 20191224
  4. MEKINIST [Suspect]
     Active Substance: TRAMETINIB DIMETHYL SULFOXIDE
     Indication: BREAST CANCER FEMALE
     Dosage: 1.5 MG, QD
     Route: 048
     Dates: start: 20191224
  5. TAFINLAR [Suspect]
     Active Substance: DABRAFENIB MESYLATE
     Indication: LUNG CARCINOMA CELL TYPE UNSPECIFIED STAGE 0
     Dosage: 75 MG, BID
     Route: 048
     Dates: start: 20191223
  6. TAFINLAR [Suspect]
     Active Substance: DABRAFENIB MESYLATE
     Indication: BREAST CANCER FEMALE
     Dosage: 75 MG, QD
     Route: 048
     Dates: start: 20191224

REACTIONS (20)
  - Pain [Unknown]
  - Skin discolouration [Unknown]
  - Muscle spasms [Unknown]
  - Back pain [Unknown]
  - Arthralgia [Unknown]
  - Blood pressure increased [Unknown]
  - Musculoskeletal discomfort [Unknown]
  - Visual impairment [Unknown]
  - Weight increased [Unknown]
  - Heart rate increased [Unknown]
  - Peripheral swelling [Unknown]
  - Acne [Unknown]
  - Rash [Unknown]
  - Abdominal pain [Unknown]
  - Erythema [Unknown]
  - Eye disorder [Unknown]
  - Joint swelling [Unknown]
  - Blood pressure decreased [Unknown]
  - Pyrexia [Unknown]
  - Pain in extremity [Unknown]
